FAERS Safety Report 5785689-7 (Version None)
Quarter: 2008Q2

REPORT INFORMATION
  Report Type: 
  Country: None (occurrence: None)
  Receive Date: 20080605
  Receipt Date: 20080222
  Transmission Date: 20081010
  Serious: No
  Sender: FDA-Public Use
  Company Number: A0711263A

PATIENT

DRUGS (5)
  1. ALLI [Suspect]
     Route: 048
  2. UNKNOWN MEDICATION [Concomitant]
     Indication: DEPRESSION
  3. LUVOX [Concomitant]
  4. TRAZODONE HCL [Concomitant]
  5. RITALIN [Concomitant]

REACTIONS (2)
  - DEPRESSION [None]
  - DRUG INTERACTION [None]
